FAERS Safety Report 10143909 (Version 4)
Quarter: 2015Q4

REPORT INFORMATION
  Report Type: Spontaneous
  Country: US (occurrence: US)
  Receive Date: 20140430
  Receipt Date: 20151221
  Transmission Date: 20160304
  Serious: Yes (Hospitalization, Other)
  Sender: FDA-Public Use
  Company Number: US-BAYER-2014-062927

PATIENT
  Age: 25 Year
  Sex: Female
  Weight: 86 kg

DRUGS (1)
  1. YAZ [Suspect]
     Active Substance: DROSPIRENONE\ETHINYL ESTRADIOL
     Indication: ACNE
     Dosage: UNK
     Dates: start: 201001, end: 201008

REACTIONS (5)
  - Colitis ischaemic [None]
  - Pain [None]
  - Thrombosis [None]
  - Injury [None]
  - Embolism arterial [None]

NARRATIVE: CASE EVENT DATE: 201008
